FAERS Safety Report 9332364 (Version 2)
Quarter: 2013Q3

REPORT INFORMATION
  Report Type: Spontaneous
  Country: JP (occurrence: JP)
  Receive Date: 20130606
  Receipt Date: 20130701
  Transmission Date: 20140515
  Serious: Yes (Hospitalization, Other)
  Sender: FDA-Public Use
  Company Number: PHHY2013JP012749

PATIENT
  Age: 49 Year
  Sex: Male

DRUGS (2)
  1. TEGRETOL [Suspect]
     Indication: EPILEPSY
     Dosage: 2 DF, QD
     Route: 048
     Dates: start: 20120517
  2. TEGRETOL [Suspect]
     Dosage: 1 DF, QD
     Route: 048
     Dates: start: 20120520, end: 20120609

REACTIONS (13)
  - Drug reaction with eosinophilia and systemic symptoms [Recovered/Resolved]
  - Liver disorder [Recovering/Resolving]
  - Drug eruption [Recovered/Resolved]
  - Generalised erythema [Unknown]
  - Pyrexia [Unknown]
  - Rash [Recovered/Resolved]
  - Feeling hot [Unknown]
  - Pruritus [Recovered/Resolved]
  - Erythema of eyelid [Unknown]
  - Erythema [Recovered/Resolved]
  - Arthralgia [Recovered/Resolved]
  - Oral pain [Unknown]
  - Conjunctival disorder [Unknown]
